FAERS Safety Report 20244828 (Version 1)
Quarter: 2021Q4

REPORT INFORMATION
  Report Type: Spontaneous
  Country: CN (occurrence: None)
  Receive Date: 20211229
  Receipt Date: 20211229
  Transmission Date: 20220303
  Serious: Yes (Other)
  Sender: FDA-Public Use
  Company Number: CN-ROCHE-2984414

PATIENT
  Age: 67 Year
  Sex: Male

DRUGS (25)
  1. BEVACIZUMAB [Suspect]
     Active Substance: BEVACIZUMAB
     Indication: Metastases to liver
     Dosage: CAPIRI + BEVACIZUMAB
     Route: 065
     Dates: start: 20180928
  2. BEVACIZUMAB [Suspect]
     Active Substance: BEVACIZUMAB
     Dosage: CAPEOX+ BEVACIZUMAB
     Route: 065
     Dates: start: 20191023
  3. BEVACIZUMAB [Suspect]
     Active Substance: BEVACIZUMAB
     Dosage: CAPECITABINE + BEVACIZUMAB
     Route: 065
     Dates: start: 20200416
  4. BEVACIZUMAB [Suspect]
     Active Substance: BEVACIZUMAB
     Dosage: TAS-102+BEV
     Route: 065
     Dates: start: 20201214, end: 20210111
  5. BEVACIZUMAB [Suspect]
     Active Substance: BEVACIZUMAB
     Dosage: IRINOTECAN + RALTITREXED + BEVACIZUMAB
     Route: 065
     Dates: start: 20210208
  6. BEVACIZUMAB [Suspect]
     Active Substance: BEVACIZUMAB
     Dosage: CAMRELIZUMAB + BEVACIZUMAB + TRIFLURIDINE/TIPIRACIL
     Route: 065
     Dates: start: 20211109
  7. BEVACIZUMAB [Suspect]
     Active Substance: BEVACIZUMAB
     Dosage: BEVACIZUMAB
     Route: 033
     Dates: start: 202112
  8. XELODA [Suspect]
     Active Substance: CAPECITABINE
     Indication: Metastases to liver
     Dosage: CAPIRI + BEVACIZUMAB
     Route: 048
     Dates: start: 20180928
  9. XELODA [Suspect]
     Active Substance: CAPECITABINE
     Dosage: CAPEOX+ BEVACIZUMAB
     Route: 048
     Dates: start: 20191023
  10. XELODA [Suspect]
     Active Substance: CAPECITABINE
     Dosage: CAPECITABINE + BEVACIZUMAB
     Route: 048
     Dates: start: 20200416
  11. RALTITREXED [Suspect]
     Active Substance: RALTITREXED
     Indication: Metastases to liver
     Dosage: IRINOTECAN + RALTITREXED + BEVACIZUMAB
     Route: 065
     Dates: start: 20210208
  12. IRINOTECAN [Suspect]
     Active Substance: IRINOTECAN
     Indication: Metastases to liver
     Dosage: CAPIRI + BEVACIZUMAB
     Route: 065
     Dates: start: 20180928
  13. IRINOTECAN [Suspect]
     Active Substance: IRINOTECAN
     Dosage: FOLFIRI
     Route: 065
     Dates: start: 20190109
  14. IRINOTECAN [Suspect]
     Active Substance: IRINOTECAN
     Dosage: IRINOTECAN + RALTITREXED + BEVACIZUMAB
     Route: 065
     Dates: start: 20210208
  15. LEUCOVORIN CALCIUM [Concomitant]
     Active Substance: LEUCOVORIN CALCIUM
     Dosage: FOLFIRI
     Dates: start: 20190109
  16. FLUOROURACIL [Concomitant]
     Active Substance: FLUOROURACIL
     Dosage: FOLFIRI
     Dates: start: 20190109
  17. OXALIPLATIN [Concomitant]
     Active Substance: OXALIPLATIN
     Dosage: CAPEOX
     Dates: start: 20191023
  18. OXALIPLATIN [Concomitant]
     Active Substance: OXALIPLATIN
     Dosage: CAMRELIZUMAB + OXALIPLATIN + TRIFLURIDINE/TIPIRACIL
     Dates: start: 20211207
  19. TRIFLURIDINE [Concomitant]
     Active Substance: TRIFLURIDINE
     Dosage: TAS-102+BEV
     Dates: start: 20201214, end: 20210111
  20. TRIFLURIDINE [Concomitant]
     Active Substance: TRIFLURIDINE
     Dosage: CAMRELIZUMAB + BEVACIZUMAB + TRIFLURIDINE/TIPIRACIL
     Dates: start: 20211109
  21. TRIFLURIDINE [Concomitant]
     Active Substance: TRIFLURIDINE
     Dosage: CAMRELIZUMAB + OXALIPLATIN + TRIFLURIDINE/TIPIRACIL
     Dates: start: 20211207
  22. CAMRELIZUMAB [Concomitant]
     Active Substance: CAMRELIZUMAB
     Dates: start: 202107, end: 202110
  23. CAMRELIZUMAB [Concomitant]
     Active Substance: CAMRELIZUMAB
     Dosage: CAMRELIZUMAB + BEVACIZUMAB + TRIFLURIDINE/TIPIRACIL
     Dates: start: 20211109
  24. CAMRELIZUMAB [Concomitant]
     Active Substance: CAMRELIZUMAB
     Dosage: CAMRELIZUMAB + OXALIPLATIN + TRIFLURIDINE/TIPIRACIL
     Dates: start: 20211207
  25. FRUQUINTINIB [Concomitant]
     Active Substance: FRUQUINTINIB
     Dates: start: 202107, end: 202110

REACTIONS (7)
  - Myelosuppression [Unknown]
  - Proteinuria [Unknown]
  - Hypertension [Unknown]
  - Diarrhoea [Unknown]
  - Oedema peripheral [Unknown]
  - Off label use [Unknown]
  - Disease progression [Unknown]
